FAERS Safety Report 5256773-1 (Version None)
Quarter: 2007Q1

REPORT INFORMATION
  Report Type: 
  Country: None (occurrence: None)
  Receive Date: 20061204
  Receipt Date: 20061011
  Transmission Date: 20070707
  Serious: No
  Sender: FDA-Public Use
  Company Number: 2006-BP-11934BP

PATIENT
  Sex: Male

DRUGS (4)
  1. SPIRIVA [Suspect]
     Indication: CHRONIC OBSTRUCTIVE PULMONARY DISEASE
     Dosage: 18 MCG (18 MCG,1 IN 1 D),IH
     Dates: start: 20060501
  2. SPIRIVA [Suspect]
  3. FLONASE [Concomitant]
  4. PULMICORT [Concomitant]

REACTIONS (2)
  - DYSPHONIA [None]
  - DYSPNOEA [None]
